FAERS Safety Report 5289021-7 (Version None)
Quarter: 2007Q2

REPORT INFORMATION
  Report Type: 
  Country: None (occurrence: None)
  Receive Date: 20070405
  Receipt Date: 20070327
  Transmission Date: 20071010
  Serious: Yes (Other)
  Sender: FDA-Public Use
  Company Number: US-PFIZER INC-2007024720

PATIENT
  Sex: Female
  Weight: 77.1 kg

DRUGS (4)
  1. XALATAN [Suspect]
     Indication: INTRAOCULAR PRESSURE TEST
     Route: 047
  2. LOTEMAX [Concomitant]
  3. ALPHAGAN [Concomitant]
  4. ALL OTHER THERAPEUTIC PRODUCTS [Concomitant]

REACTIONS (3)
  - EYE DISORDER [None]
  - EYE OPERATION [None]
  - ROTATOR CUFF REPAIR [None]
